FAERS Safety Report 5713897-X (Version None)
Quarter: 2008Q2

REPORT INFORMATION
  Report Type: 
  Country: None (occurrence: None)
  Receive Date: 20080422
  Receipt Date: 20080422
  Transmission Date: 20081010
  Serious: Yes (Hospitalization)
  Sender: FDA-Public Use
  Company Number: None

PATIENT
  Age: 35 Year
  Sex: Female
  Weight: 68.0396 kg

DRUGS (4)
  1. ALPRAZOLAM [Suspect]
     Indication: ANXIETY
     Dosage: 1 TABLET TID PO
     Route: 048
     Dates: start: 20080418
  2. ALPRAZOLAM [Suspect]
     Indication: MAJOR DEPRESSION
     Dosage: 1 TABLET TID PO
     Route: 048
     Dates: start: 20080418
  3. ALPRAZOLAM [Suspect]
     Indication: ANXIETY
     Dosage: 1 TABLET TID PO
     Route: 048
     Dates: start: 20080419
  4. ALPRAZOLAM [Suspect]
     Indication: MAJOR DEPRESSION
     Dosage: 1 TABLET TID PO
     Route: 048
     Dates: start: 20080419

REACTIONS (3)
  - ADVERSE REACTION [None]
  - FEELING ABNORMAL [None]
  - PHARMACEUTICAL PRODUCT COMPLAINT [None]
